FAERS Safety Report 10628190 (Version 1)
Quarter: 2014Q4

REPORT INFORMATION
  Report Type: Spontaneous
  Country: US (occurrence: US)
  Receive Date: 20141205
  Receipt Date: 20141205
  Transmission Date: 20150529
  Serious: Yes (Death, Other)
  Sender: FDA-Public Use
  Company Number: US-BRISTOL-MYERS SQUIBB COMPANY-21214374

PATIENT
  Sex: Female
  Weight: 52.15 kg

DRUGS (1)
  1. ERBITUX [Suspect]
     Active Substance: CETUXIMAB
     Indication: RECTAL CANCER
     Dosage: SCHEDULED FOR A DOSE OF 620 MG
     Dates: start: 20130828

REACTIONS (2)
  - Cardiac arrest [Unknown]
  - Malignant neoplasm progression [Fatal]
